FAERS Safety Report 12124133 (Version 3)
Quarter: 2016Q1

REPORT INFORMATION
  Report Type: Spontaneous
  Country: NL (occurrence: NL)
  Receive Date: 20160229
  Receipt Date: 20160330
  Transmission Date: 20160526
  Serious: Yes (Death, Hospitalization)
  Sender: FDA-Public Use
  Company Number: NL-TOLMAR, INC.-2016NL001858

PATIENT
  Age: 75 Year
  Sex: Male

DRUGS (2)
  1. ELIGARD [Suspect]
     Active Substance: LEUPROLIDE ACETATE
     Indication: PROSTATE CANCER
     Dosage: 45 MG, EVERY SIX MONTHS
     Route: 058
     Dates: start: 20150226
  2. ELIGARD [Suspect]
     Active Substance: LEUPROLIDE ACETATE
     Dosage: 45 MG, EVERY SIX MONTHS
     Route: 058
     Dates: start: 20150824

REACTIONS (4)
  - Sepsis [Unknown]
  - Death [Fatal]
  - Pneumonia aspiration [Unknown]
  - Myocardial infarction [Unknown]

NARRATIVE: CASE EVENT DATE: 20150925
